FAERS Safety Report 24187440 (Version 10)
Quarter: 2025Q4

REPORT INFORMATION
  Report Type: Spontaneous
  Country: CA (occurrence: CA)
  Receive Date: 20240808
  Receipt Date: 20251021
  Transmission Date: 20260118
  Serious: Yes (Other)
  Sender: CELLTRION
  Company Number: CA-CELLTRION INC.-2021CA019516

PATIENT

DRUGS (25)
  1. TRUXIMA [Suspect]
     Active Substance: RITUXIMAB-ABBS
     Indication: Anti-myelin-associated glycoprotein associated polyneuropathy
     Dosage: 700MG QW, 4WEEKS
     Route: 042
     Dates: start: 20220204
  2. TRUXIMA [Suspect]
     Active Substance: RITUXIMAB-ABBS
     Dosage: 700 MG, FIRST INFUSION ONCE WEEKLY
     Route: 042
     Dates: start: 20220204
  3. TRUXIMA [Suspect]
     Active Substance: RITUXIMAB-ABBS
     Dosage: 700 MG, SECOND INFUSION ONCE WEEKLY
     Route: 042
     Dates: start: 20220211
  4. TRUXIMA [Suspect]
     Active Substance: RITUXIMAB-ABBS
     Dosage: 700 MG, THIRD INFUSION ONCE WEEKLY
     Route: 042
     Dates: start: 20220218
  5. TRUXIMA [Suspect]
     Active Substance: RITUXIMAB-ABBS
     Dosage: 700 MG, LAST INFUSION, ONCE WEEKLY
     Route: 042
     Dates: start: 20220225
  6. TRUXIMA [Suspect]
     Active Substance: RITUXIMAB-ABBS
     Dosage: 700 MG, INFUSION#4
     Dates: start: 20220204
  7. TRUXIMA [Suspect]
     Active Substance: RITUXIMAB-ABBS
     Dosage: 700MILLIGRAM, INFUSION#9
     Route: 042
     Dates: start: 20220204
  8. TRUXIMA [Suspect]
     Active Substance: RITUXIMAB-ABBS
     Dosage: 700MILLIGRAM, INFUSION#10
     Route: 042
     Dates: start: 20220204
  9. TRUXIMA [Suspect]
     Active Substance: RITUXIMAB-ABBS
     Dosage: 700MILLIGRAM, INFUSION#13
     Route: 042
     Dates: start: 20220204
  10. TRUXIMA [Suspect]
     Active Substance: RITUXIMAB-ABBS
     Dosage: 700MILLIGRAM, INFUSION#15
     Route: 042
     Dates: start: 20220204
  11. TRUXIMA [Suspect]
     Active Substance: RITUXIMAB-ABBS
     Dosage: 800MILLIGRAM, INFUSION#17
     Route: 042
     Dates: start: 20220204
  12. TRUXIMA [Suspect]
     Active Substance: RITUXIMAB-ABBS
     Dosage: 800MILLIGRAM, INFUSION#18
     Route: 042
  13. TRUXIMA [Suspect]
     Active Substance: RITUXIMAB-ABBS
     Dosage: 800 MG, Q4MONTHS
     Route: 042
     Dates: start: 20220204
  14. TRUXIMA [Suspect]
     Active Substance: RITUXIMAB-ABBS
     Dosage: 800 MG, Q4MONTHS
     Route: 042
     Dates: start: 20220204, end: 20240814
  15. TRUXIMA [Suspect]
     Active Substance: RITUXIMAB-ABBS
     Dosage: 700 MG, WKLYX4 DOSE
     Route: 042
     Dates: start: 20250305
  16. TRUXIMA [Suspect]
     Active Substance: RITUXIMAB-ABBS
     Dosage: 700 MG, Q WEEKLY (QW)
     Route: 042
     Dates: start: 20220204
  17. TRUXIMA [Suspect]
     Active Substance: RITUXIMAB-ABBS
     Dosage: 700 MG, Q WEEKLY (QW)
     Route: 042
     Dates: start: 20220204
  18. AMIODARONE [Concomitant]
     Active Substance: AMIODARONE
  19. ROSUVASTATIN [Concomitant]
     Active Substance: ROSUVASTATIN
  20. BENADRYL [Concomitant]
     Active Substance: DIPHENHYDRAMINE HYDROCHLORIDE
     Indication: Premedication
     Dosage: 50 MG
     Route: 048
  21. TYLENOL [Concomitant]
     Active Substance: ACETAMINOPHEN
     Indication: Premedication
     Dosage: 650 MG
     Route: 048
  22. SOLU-MEDROL [Concomitant]
     Active Substance: METHYLPREDNISOLONE SODIUM SUCCINATE
     Indication: Premedication
     Dosage: 100 MG
     Route: 042
  23. SOLU-MEDROL [Concomitant]
     Active Substance: METHYLPREDNISOLONE SODIUM SUCCINATE
     Dosage: 100 MG
     Route: 048
  24. METHYLPREDNISOLONE [Concomitant]
     Active Substance: METHYLPREDNISOLONE
     Indication: Premedication
     Dosage: 100 MG
     Route: 042
     Dates: start: 20240807
  25. SHINGRIX [Concomitant]
     Active Substance: RECOMBINANT VARICELLA ZOSTER VIRUS (VZV) GLYCOPROTEIN E
     Dosage: UNK
     Dates: start: 20250528

REACTIONS (15)
  - Surgery [Unknown]
  - Cardiac ablation [Unknown]
  - Atrial fibrillation [Unknown]
  - Cardiac failure [Unknown]
  - Poor venous access [Unknown]
  - Infusion site extravasation [Unknown]
  - Blood pressure increased [Unknown]
  - Anxiety [Unknown]
  - Anxiety [Unknown]
  - Headache [Recovered/Resolved]
  - Urticaria [Not Recovered/Not Resolved]
  - Malaise [Unknown]
  - Walking aid user [Unknown]
  - Off label use [Unknown]
  - Product preparation error [Unknown]

NARRATIVE: CASE EVENT DATE: 20220205
